FAERS Safety Report 19469995 (Version 1)
Quarter: 2021Q2

REPORT INFORMATION
  Report Type: Spontaneous
  Country: BE (occurrence: BE)
  Receive Date: 20210628
  Receipt Date: 20210628
  Transmission Date: 20210717
  Serious: Yes (Other)
  Sender: FDA-Public Use
  Company Number: BE-MYLANLABS-2021M1037291

PATIENT
  Age: 39 Year
  Sex: Male

DRUGS (7)
  1. LEVOFLOXACIN. [Suspect]
     Active Substance: LEVOFLOXACIN
     Indication: EPIDIDYMITIS
     Dosage: 1 DOSAGE FORM, QD (TAKEN BETWEEN BREAKFAST AND LUNCH)
     Route: 048
     Dates: start: 20201128, end: 20201208
  2. XANAX [Concomitant]
     Active Substance: ALPRAZOLAM
     Dosage: 1 DOSAGE FORM, QD (TAKEN AT BREAKFAST)
  3. CONCERTA [Concomitant]
     Active Substance: METHYLPHENIDATE HYDROCHLORIDE
     Dosage: 1 DOSAGE FORM, QD (TAKEN AT BREAKFAST)
  4. SIPRALEXA [Concomitant]
     Active Substance: ESCITALOPRAM OXALATE
     Dosage: 1 DOSAGE FORM, QD (TAKEN BEFORE GOING TO SLEEP)
  5. LEVOFLOXACIN. [Suspect]
     Active Substance: LEVOFLOXACIN
     Indication: ORCHITIS
  6. IBUPROFEN. [Concomitant]
     Active Substance: IBUPROFEN
     Dosage: 3 DOSAGE FORM, QD (TAKEN BY EACH MEAL)
  7. ZOLPIDEM [Concomitant]
     Active Substance: ZOLPIDEM TARTRATE
     Dosage: 1 DOSAGE FORM, QD (TAKEN BEFORE GOING TO SLEEP)

REACTIONS (12)
  - Ear pain [Recovering/Resolving]
  - Negative thoughts [Recovering/Resolving]
  - Depressed mood [Recovering/Resolving]
  - Memory impairment [Recovering/Resolving]
  - Colour blindness acquired [Recovering/Resolving]
  - Loss of consciousness [Recovering/Resolving]
  - Disturbance in attention [Recovering/Resolving]
  - Arthralgia [Recovering/Resolving]
  - Paranoia [Recovering/Resolving]
  - Behaviour disorder [Recovering/Resolving]
  - Myalgia [Recovering/Resolving]
  - Hallucination [Recovering/Resolving]

NARRATIVE: CASE EVENT DATE: 20201130
